FAERS Safety Report 5113844-8 (Version None)
Quarter: 2006Q3

REPORT INFORMATION
  Report Type: 
  Country: None (occurrence: None)
  Receive Date: 20060921
  Receipt Date: 20060921
  Transmission Date: 20061208
  Serious: No
  Sender: FDA-Public Use
  Company Number: None

PATIENT
  Age: 68 Year
  Sex: Female
  Weight: 77.1115 kg

DRUGS (1)
  1. VALIUM [Suspect]
     Indication: TREMOR
     Dosage: ONE TID ORAL
     Route: 048
     Dates: start: 20060728

REACTIONS (2)
  - DIZZINESS [None]
  - HEADACHE [None]
